FAERS Safety Report 19236332 (Version 1)
Quarter: 2021Q2

REPORT INFORMATION
  Report Type: Report from Study
  Country: DO (occurrence: DO)
  Receive Date: 20210510
  Receipt Date: 20210510
  Transmission Date: 20210717
  Serious: Yes (Death, Hospitalization)
  Sender: FDA-Public Use
  Company Number: NVSC2020DO340796

PATIENT
  Age: 56 Year
  Sex: Female

DRUGS (6)
  1. KISQALI [Suspect]
     Active Substance: RIBOCICLIB
     Indication: METASTASES TO LIVER
     Dosage: 600 MG, QD
     Route: 048
     Dates: start: 202102, end: 202102
  2. FEMARA [Suspect]
     Active Substance: LETROZOLE
     Indication: PRODUCT USED FOR UNKNOWN INDICATION
     Dosage: 2.5 MG
     Route: 065
  3. KISQALI [Suspect]
     Active Substance: RIBOCICLIB
     Indication: BREAST CANCER
     Dosage: 600 MG, QD
     Route: 048
     Dates: start: 20201211, end: 20210410
  4. FEMARA [Suspect]
     Active Substance: LETROZOLE
     Dosage: UNK UNK, QD
     Route: 065
     Dates: start: 20201219
  5. FEMARA [Suspect]
     Active Substance: LETROZOLE
     Dosage: 2.3 MG
     Route: 065
  6. KISQALI [Suspect]
     Active Substance: RIBOCICLIB
     Indication: METASTASES TO LUNG
     Dosage: UNK
     Route: 048
     Dates: start: 20201219

REACTIONS (13)
  - Atrophy [Unknown]
  - Lung disorder [Fatal]
  - Musculoskeletal chest pain [Fatal]
  - Dyspnoea [Fatal]
  - Pain in extremity [Unknown]
  - Insomnia [Unknown]
  - Tachycardia [Unknown]
  - Hyperchlorhydria [Unknown]
  - Back pain [Not Recovered/Not Resolved]
  - Neck pain [Unknown]
  - Headache [Unknown]
  - Decreased appetite [Fatal]
  - Product dose omission issue [Unknown]

NARRATIVE: CASE EVENT DATE: 20201215
